FAERS Safety Report 16741364 (Version 1)
Quarter: 2019Q3

REPORT INFORMATION
  Report Type: Report from Study
  Country: GB (occurrence: GB)
  Receive Date: 20190826
  Receipt Date: 20190826
  Transmission Date: 20191005
  Serious: Yes (Other)
  Sender: FDA-Public Use
  Company Number: GB-SAMSUNG BIOEPIS-SB-2019-24125

PATIENT
  Sex: Female

DRUGS (1)
  1. IMRALDI [Suspect]
     Active Substance: ADALIMUMAB
     Indication: ANKYLOSING SPONDYLITIS
     Route: 058

REACTIONS (2)
  - Kidney infection [Unknown]
  - Urinary tract infection [Unknown]
